FAERS Safety Report 11980317 (Version 3)
Quarter: 2016Q1

REPORT INFORMATION
  Report Type: Spontaneous
  Country: US (occurrence: US)
  Receive Date: 20160129
  Receipt Date: 20160226
  Transmission Date: 20160526
  Serious: No
  Sender: FDA-Public Use
  Company Number: US-PFIZER INC-2016025729

PATIENT
  Age: 76 Year
  Sex: Female
  Weight: 61.22 kg

DRUGS (7)
  1. PROBIOTIC /06395501/ [Concomitant]
     Active Substance: BIFIDOBACTERIUM ANIMALIS SUBSP. LACTIS
  2. HYDROXYUREA. [Concomitant]
     Active Substance: HYDROXYUREA
     Indication: THROMBOCYTOPENIA
     Dosage: 500 MG, DAILY
     Dates: end: 20160106
  3. SUTENT [Suspect]
     Active Substance: SUNITINIB MALATE
     Indication: RENAL CANCER STAGE IV
     Dosage: 50 MG, 50 MG  DAILY, 28 DAYS ON/14 DAYS OFF, EVERY 6 WEEKS, TAKEN MONTHLY  FOR 2 WEEKS
     Route: 048
     Dates: start: 20151228, end: 20160112
  4. FOLIC ACID. [Concomitant]
     Active Substance: FOLIC ACID
  5. DIOVAN [Concomitant]
     Active Substance: VALSARTAN
  6. COUMADIN [Concomitant]
     Active Substance: WARFARIN SODIUM
     Indication: ATRIAL FIBRILLATION
  7. METOPROLOL. [Concomitant]
     Active Substance: METOPROLOL

REACTIONS (9)
  - Liver function test increased [Unknown]
  - Dizziness postural [Unknown]
  - Sinusitis [Unknown]
  - Dysgeusia [Unknown]
  - Hepatotoxicity [Recovered/Resolved]
  - Epistaxis [Unknown]
  - Jaundice [Unknown]
  - Apathy [Unknown]
  - Ocular icterus [Unknown]
